FAERS Safety Report 24356016 (Version 1)
Quarter: 2024Q3

REPORT INFORMATION
  Report Type: Spontaneous
  Country: CZ (occurrence: CZ)
  Receive Date: 20240924
  Receipt Date: 20240924
  Transmission Date: 20241017
  Serious: Yes (Hospitalization, Other)
  Sender: CELLTRION
  Company Number: CZ-CELLTRION INC.-2024CZ022337

PATIENT

DRUGS (1)
  1. INFLIXIMAB [Suspect]
     Active Substance: INFLIXIMAB
     Indication: Crohn^s disease
     Dosage: UNK
     Route: 042

REACTIONS (3)
  - Abdominal abscess [Recovered/Resolved]
  - Incisional drainage [Recovered/Resolved]
  - Abscess drainage [Recovered/Resolved]

NARRATIVE: CASE EVENT DATE: 20240722
